FAERS Safety Report 8048097-4 (Version None)
Quarter: 2012Q1

REPORT INFORMATION
  Report Type: 
  Country: None (occurrence: None)
  Receive Date: 20120117
  Receipt Date: 20120107
  Transmission Date: 20120608
  Serious: Yes (Hospitalization)
  Sender: FDA-Public Use
  Company Number: HU-PAR PHARMACEUTICAL, INC-2012SCPR003905

PATIENT

DRUGS (6)
  1. CLOZAPINE [Suspect]
     Indication: SCHIZOPHRENIA
     Dosage: 225 MG, / DAY
     Route: 065
     Dates: start: 20091001
  2. CLONAZEPAM [Concomitant]
     Indication: PRODUCT USED FOR UNKNOWN INDICATION
     Dosage: UNK, UNKNOWN
     Route: 065
  3. BIPERIDEN HYDROCHLORIDE TAB [Concomitant]
     Indication: PRODUCT USED FOR UNKNOWN INDICATION
     Dosage: UNK, UNKNOWN
     Route: 065
  4. RISPERIDONE [Suspect]
     Indication: SCHIZOPHRENIA
     Dosage: UPTO 8 MG, / DAY
     Route: 065
  5. HALOPERIDOL [Suspect]
     Indication: PSYCHOTIC DISORDER
     Dosage: UPTO 5 MG, / DAY
     Route: 065
  6. OLANZAPINE [Suspect]
     Indication: SCHIZOPHRENIA
     Dosage: 10 MG, / DAY
     Route: 065

REACTIONS (3)
  - DYSTONIA [None]
  - CONDITION AGGRAVATED [None]
  - SELF INJURIOUS BEHAVIOUR [None]
